FAERS Safety Report 9278925 (Version 2)
Quarter: 2013Q3

REPORT INFORMATION
  Report Type: Spontaneous
  Country: US (occurrence: US)
  Receive Date: 20130508
  Receipt Date: 20130719
  Transmission Date: 20140515
  Serious: Yes (Hospitalization, Other)
  Sender: FDA-Public Use
  Company Number: US-AMGEN-USASP2013031726

PATIENT
  Age: 26 Year
  Sex: Male

DRUGS (4)
  1. ENBREL [Suspect]
     Indication: PSORIATIC ARTHROPATHY
     Dosage: 50 MG, QWK
     Route: 065
     Dates: start: 20010101
  2. ENBREL [Suspect]
     Indication: PSORIASIS
  3. HEROIN [Concomitant]
     Dosage: UNK
  4. METHOTREXATE [Concomitant]
     Dosage: UNK
     Dates: start: 200101, end: 200101

REACTIONS (18)
  - Impaired healing [Recovered/Resolved]
  - Drug dependence [Recovered/Resolved]
  - Drug withdrawal syndrome [Recovered/Resolved]
  - Depression [Recovered/Resolved]
  - Septic arthritis staphylococcal [Recovered/Resolved]
  - Injection site abscess [Recovered/Resolved]
  - Nephrolithiasis [Not Recovered/Not Resolved]
  - Oedema peripheral [Unknown]
  - Arthralgia [Unknown]
  - Memory impairment [Unknown]
  - Drug effect incomplete [Not Recovered/Not Resolved]
  - Urinary tract infection [Recovered/Resolved]
  - Injection site swelling [Recovered/Resolved]
  - Psoriasis [Not Recovered/Not Resolved]
  - Gastroenteritis viral [Recovered/Resolved]
  - Sinusitis [Recovered/Resolved]
  - Lower respiratory tract infection [Unknown]
  - Rotavirus infection [Unknown]
